FAERS Safety Report 13865547 (Version 2)
Quarter: 2017Q3

REPORT INFORMATION
  Report Type: Report from Study
  Country: BE (occurrence: BE)
  Receive Date: 20170814
  Receipt Date: 20170823
  Transmission Date: 20171127
  Serious: Yes (Hospitalization, Other)
  Sender: FDA-Public Use
  Company Number: BE-PFIZER INC-2017257208

PATIENT
  Sex: Female
  Weight: 74.5 kg

DRUGS (4)
  1. PALBOCICLIB [Suspect]
     Active Substance: PALBOCICLIB
     Dosage: 125 MG, CYCLIC (1X/DAY, 3 WEEKS ON, 1 WEEK OFF)
     Dates: start: 20170614, end: 20170802
  2. LETROZOLE. [Concomitant]
     Active Substance: LETROZOLE
     Indication: BREAST CANCER METASTATIC
     Dosage: 2.5 MG, UNK
  3. PALBOCICLIB [Suspect]
     Active Substance: PALBOCICLIB
     Dosage: 100 MG, CYCLIC (1X/DAY, 3 WEEKS ON, 1 WEEK OFF)
     Dates: start: 20170816
  4. PALBOCICLIB [Suspect]
     Active Substance: PALBOCICLIB
     Indication: BREAST CANCER METASTATIC
     Dosage: 125 MG, CYCLIC (1X/DAY, 3 WEEKS ON, 1 WEEK OFF)
     Dates: start: 20170412, end: 20170531

REACTIONS (7)
  - Neutropenia [Recovered/Resolved]
  - Anaemia [Unknown]
  - Poikilocytosis [Unknown]
  - White blood cell count decreased [Recovered/Resolved]
  - Thrombocytopenia [Not Recovered/Not Resolved]
  - Epistaxis [Recovered/Resolved]
  - Anisocytosis [Unknown]

NARRATIVE: CASE EVENT DATE: 20170425
